FAERS Safety Report 14978586 (Version 2)
Quarter: 2018Q2

REPORT INFORMATION
  Report Type: Spontaneous
  Country: ME (occurrence: ME)
  Receive Date: 20180606
  Receipt Date: 20180614
  Transmission Date: 20180711
  Serious: Yes (Other)
  Sender: FDA-Public Use
  Company Number: ME-ROCHE-2135101

PATIENT
  Age: 32 Year
  Sex: Male

DRUGS (2)
  1. TOCILIZUMAB. [Suspect]
     Active Substance: TOCILIZUMAB
     Indication: RHEUMATOID ARTHRITIS
     Route: 065
     Dates: start: 201206
  2. METHOTREXATE. [Concomitant]
     Active Substance: METHOTREXATE
     Route: 065
     Dates: start: 201206, end: 201401

REACTIONS (1)
  - Acute hepatic failure [Recovered/Resolved]

NARRATIVE: CASE EVENT DATE: 201407
